FAERS Safety Report 9991620 (Version 3)
Quarter: 2014Q1

REPORT INFORMATION
  Report Type: Spontaneous
  Country: US (occurrence: US)
  Receive Date: 20140310
  Receipt Date: 20140327
  Transmission Date: 20141002
  Serious: Yes (Hospitalization, Other)
  Sender: FDA-Public Use
  Company Number: US-PFIZER INC-2014068395

PATIENT
  Age: 31 Year
  Sex: Male

DRUGS (4)
  1. EFFEXOR XR [Suspect]
     Indication: DEPRESSION
     Dosage: 75 MG, 2X/DAY
     Dates: start: 2003
  2. EFFEXOR XR [Suspect]
     Dosage: 150 MG, 2X/DAY
  3. EFFEXOR XR [Suspect]
     Dosage: 300 MG, 2X/DAY
  4. EFFEXOR XR [Suspect]
     Dosage: UNK
     Dates: end: 20050519

REACTIONS (3)
  - Limb injury [Unknown]
  - Weight increased [Unknown]
  - Neuralgia [Unknown]
